FAERS Safety Report 8103662-0 (Version None)
Quarter: 2012Q1

REPORT INFORMATION
  Report Type: 
  Country: None (occurrence: None)
  Receive Date: 20120201
  Receipt Date: 20120120
  Transmission Date: 20120608
  Serious: Yes (Other)
  Sender: FDA-Public Use
  Company Number: AR-ROCHE-1035291

PATIENT
  Sex: Female

DRUGS (1)
  1. LUCENTIS [Suspect]
     Indication: VISUAL IMPAIRMENT
     Dosage: DOSE OF FOUR TOTAL APPLICATIONS
     Route: 050
     Dates: start: 20080601

REACTIONS (3)
  - VISUAL ACUITY REDUCED [None]
  - HIP FRACTURE [None]
  - DRUG INEFFECTIVE [None]
